FAERS Safety Report 14743868 (Version 1)
Quarter: 2018Q2

REPORT INFORMATION
  Report Type: Spontaneous
  Country: VN (occurrence: VN)
  Receive Date: 20180410
  Receipt Date: 20180410
  Transmission Date: 20180711
  Serious: Yes (Hospitalization, Other)
  Sender: FDA-Public Use
  Company Number: VN-009507513-1804VNM004044

PATIENT
  Sex: Male

DRUGS (1)
  1. KEYTRUDA [Suspect]
     Active Substance: PEMBROLIZUMAB
     Dosage: 1 VIA OF KEYTRUDA 100MG/4ML, EACH 3 WEEKS
     Route: 042
     Dates: start: 201711

REACTIONS (2)
  - Malignant neoplasm progression [Unknown]
  - Condition aggravated [Unknown]
